FAERS Safety Report 4660496-7 (Version None)
Quarter: 2005Q2

REPORT INFORMATION
  Report Type: 
  Country: None (occurrence: None)
  Receive Date: 20050427
  Receipt Date: 20050204
  Transmission Date: 20051028
  Serious: No
  Sender: FDA-Public Use
  Company Number: 212247

PATIENT
  Age: 53 Year
  Sex: Female
  Weight: 95.7 kg

DRUGS (28)
  1. XOLAIR [Suspect]
     Indication: ASTHMA
     Dosage: 300 MG, Q4W, SUBCUTANEOUS
     Route: 058
     Dates: start: 20041101
  2. DIFLUCAN [Concomitant]
  3. SALSALATE (SALSALATE) [Concomitant]
  4. CORTEF [Concomitant]
  5. FLOVENT INHALER (FLUTICSONE PROPIONATE) [Concomitant]
  6. CYCLOBENZAPRINE HCL (CYCLOBENZAPRINE HYDROCHLORIDE) [Concomitant]
  7. DARVOCET [Concomitant]
  8. NYSTATIN [Concomitant]
  9. PREDNISONE [Concomitant]
  10. NEURONTIN [Concomitant]
  11. OMEPRAZOLE [Concomitant]
  12. LORAZEPAM [Concomitant]
  13. DEPO-PROVERA SUSPENSION/INJ [Concomitant]
  14. VICODIN (HYDROCODONE BITARTRATE, ACETAMINOPHEN) [Concomitant]
  15. AMBIEN [Concomitant]
  16. FUROSEMIDE [Concomitant]
  17. PERCOCET [Concomitant]
  18. FOSAMAX [Concomitant]
  19. LEVOTHROID [Concomitant]
  20. ALBUTEROL (ALBUTEROL, ALBUTEROL SULFATE) [Concomitant]
  21. ACCOLATE [Concomitant]
  22. RISPERDAL [Concomitant]
  23. PRINIVIL [Concomitant]
  24. PIRBUTEROL ACETATE (PIRBUTEROL ACETATE) [Concomitant]
  25. SEREVENT DISKUS (SALMETEROL XINAFOATE) [Concomitant]
  26. POTASSIUM CHLORIDE (POTASSIUKM CHLORIDE) [Concomitant]
  27. EPIPEN (EPINEPHRINE) [Concomitant]
  28. ZYRTEC [Concomitant]

REACTIONS (3)
  - DEPRESSION [None]
  - DYSPNOEA [None]
  - SWELLING FACE [None]
